FAERS Safety Report 8611927-9 (Version None)
Quarter: 2012Q3

REPORT INFORMATION
  Report Type: 
  Country: None (occurrence: None)
  Receive Date: 20120822
  Receipt Date: 20120810
  Transmission Date: 20120928
  Serious: No
  Sender: FDA-Public Use
  Company Number: US-ASTRAZENECA-2012SE56929

PATIENT
  Age: 64 Year
  Sex: Female

DRUGS (1)
  1. PULMICORT FLEXHALER [Suspect]
     Dosage: 90, UNKNOWN
     Route: 055

REACTIONS (2)
  - DRUG INEFFECTIVE [None]
  - MALAISE [None]
